FAERS Safety Report 5197440-2 (Version None)
Quarter: 2006Q4

REPORT INFORMATION
  Report Type: 
  Country: None (occurrence: None)
  Receive Date: 20061227
  Receipt Date: 20061214
  Transmission Date: 20070319
  Serious: Yes (Other)
  Sender: FDA-Public Use
  Company Number: 2006150775

PATIENT
  Age: 67 Year
  Sex: Female

DRUGS (3)
  1. XALATAN [Suspect]
     Indication: GLAUCOMA
     Dosage: (1 D), OPHTHALMIC
     Route: 047
     Dates: start: 20060314, end: 20061113
  2. TIMOLOL MALEATE [Concomitant]
  3. DICLOFENAC SODIUM [Concomitant]

REACTIONS (1)
  - PALPITATIONS [None]
